FAERS Safety Report 5870458-X (Version None)
Quarter: 2008Q3

REPORT INFORMATION
  Report Type: 
  Country: None (occurrence: None)
  Receive Date: 20080904
  Receipt Date: 20070928
  Transmission Date: 20090109
  Serious: No
  Sender: FDA-Public Use
  Company Number: US-BRISTOL-MYERS SQUIBB COMPANY-13922737

PATIENT
  Age: 52 Year
  Sex: Female
  Weight: 100 kg

DRUGS (6)
  1. DEFINITY [Suspect]
     Indication: STRESS ECHOCARDIOGRAM
     Dosage: DEFINITY 2CC(1.5CC OF DEFINITY IN 8.5CC OF NS)AND THEN II DEFINITY DOSE OF 1CC AFTER 5 MINS.
     Dates: start: 20070927, end: 20070927
  2. GLIPIZIDE (INV) [Concomitant]
  3. ZOCOR [Concomitant]
  4. SYNTHROID [Concomitant]
  5. DIOVAN [Concomitant]
  6. ASPIRIN [Concomitant]

REACTIONS (1)
  - BACK PAIN [None]
